FAERS Safety Report 8201507 (Version 6)
Quarter: 2013Q2

REPORT INFORMATION
  Report Type: Spontaneous
  Country: US (occurrence: US)
  Receive Date: 20111027
  Receipt Date: 20130619
  Transmission Date: 20140414
  Serious: Yes (Hospitalization, Other)
  Sender: FDA-Public Use
  Company Number: US-BIOGENIDEC-2011BI040459

PATIENT
  Age: 41 Year
  Sex: Male

DRUGS (1)
  1. TYSABRI [Suspect]
     Indication: MULTIPLE SCLEROSIS
     Route: 042
     Dates: start: 20080925, end: 20110809

REACTIONS (4)
  - Testicular seminoma (pure) stage III [Recovered/Resolved]
  - Lymphadenopathy [Recovered/Resolved]
  - Abdominal lymphadenopathy [Recovered/Resolved]
  - Alopecia [Recovered/Resolved]
